FAERS Safety Report 11422028 (Version 1)
Quarter: 2015Q3

REPORT INFORMATION
  Report Type: Spontaneous
  Country: US (occurrence: None)
  Receive Date: 20150825
  Receipt Date: 20150825
  Transmission Date: 20151125
  Serious: No
  Sender: FDA-Public Use
  Company Number: US-SEPTODONT-201502941

PATIENT
  Age: 29 Year
  Sex: Male

DRUGS (2)
  1. LIDOCAINE HYDROCHLRIDE 2% WITH EPHEPHRINE 1:100,000 INJECTION LIDOCAINE HYDROCHLOIRDE; EPINEPHRINEBITARTRATE [Suspect]
     Active Substance: EPINEPHRINE\LIDOCAINE HYDROCHLORIDE
     Indication: LOCAL ANAESTHESIA
     Route: 004
     Dates: start: 201502, end: 201502
  2. BENZOCAINE 2% BENZOCAINE [Suspect]
     Active Substance: BENZOCAINE
     Indication: LOCAL ANAESTHESIA
     Route: 061
     Dates: start: 201502, end: 201502

REACTIONS (7)
  - Dyspnoea [None]
  - Respiratory arrest [None]
  - Tremor [None]
  - Cyanosis [None]
  - Dizziness [None]
  - Pallor [None]
  - Hypersensitivity [None]
